FAERS Safety Report 22070436 (Version 2)
Quarter: 2024Q1

REPORT INFORMATION
  Report Type: Spontaneous
  Country: US (occurrence: US)
  Receive Date: 20230307
  Receipt Date: 20240307
  Transmission Date: 20240410
  Serious: No
  Sender: FDA-Public Use
  Company Number: US-PTC THERAPEUTICS INC.-US-2023PTC000047

PATIENT
  Sex: Male
  Weight: 16.417 kg

DRUGS (6)
  1. EMFLAZA [Suspect]
     Active Substance: DEFLAZACORT
     Indication: Product used for unknown indication
  2. EMFLAZA [Suspect]
     Active Substance: DEFLAZACORT
     Indication: Duchenne muscular dystrophy
     Dosage: 18 MG, QD (BROKEN TABLET AND SPRINKLED ON APPLESAUCE)
     Route: 048
  3. EMFLAZA [Suspect]
     Active Substance: DEFLAZACORT
     Indication: Becker^s muscular dystrophy
  4. PREDNISOLONE [Concomitant]
     Active Substance: PREDNISOLONE
     Indication: Product used for unknown indication
     Dosage: 15MG/5ML
  5. CLONIDINE HYDROCHLORIDE [Concomitant]
     Active Substance: CLONIDINE HYDROCHLORIDE
     Indication: Product used for unknown indication
     Dosage: 0.1 MG
  6. MULTIVITAMIN GUMMY BEARS [Concomitant]

REACTIONS (5)
  - Product dose omission issue [Unknown]
  - Product taste abnormal [Unknown]
  - Product use complaint [Unknown]
  - Product taste abnormal [Unknown]
  - Product use complaint [Unknown]
